FAERS Safety Report 5912393-4 (Version None)
Quarter: 2008Q4

REPORT INFORMATION
  Report Type: 
  Country: None (occurrence: None)
  Receive Date: 20081003
  Receipt Date: 20080925
  Transmission Date: 20090506
  Serious: Yes (Other)
  Sender: FDA-Public Use
  Company Number: SPV1-2008-01826

PATIENT
  Age: 38 Year
  Sex: Male
  Weight: 59 kg

DRUGS (3)
  1. VYVANSE [Suspect]
     Indication: ATTENTION DEFICIT/HYPERACTIVITY DISORDER
     Dosage: 50 MG, 1X/DAY: QD, ORAL
     Route: 048
     Dates: start: 20080801, end: 20080807
  2. CYMBALTA [Suspect]
     Indication: DEPRESSION
     Dosage: 30 MG, ORAL
     Route: 048
     Dates: start: 20080804, end: 20080807
  3. CYMBALTA [Suspect]
     Indication: GENERALISED ANXIETY DISORDER
     Dosage: 30 MG, ORAL
     Route: 048
     Dates: start: 20080804, end: 20080807

REACTIONS (8)
  - AGITATION [None]
  - ANXIETY [None]
  - DEPRESSION SUICIDAL [None]
  - EUPHORIC MOOD [None]
  - HYPERVIGILANCE [None]
  - INSOMNIA [None]
  - REFUSAL OF TREATMENT BY PATIENT [None]
  - SUICIDAL IDEATION [None]
